FAERS Safety Report 5440502-2 (Version None)
Quarter: 2007Q3

REPORT INFORMATION
  Report Type: 
  Country: None (occurrence: None)
  Receive Date: 20070831
  Receipt Date: 20070821
  Transmission Date: 20080115
  Serious: Yes (Hospitalization, Other)
  Sender: FDA-Public Use
  Company Number: US-AMGEN-US239837

PATIENT
  Sex: Female

DRUGS (3)
  1. ENBREL [Suspect]
     Indication: RHEUMATOID ARTHRITIS
     Route: 058
     Dates: start: 20010101
  2. METHOTREXATE [Concomitant]
     Route: 058
     Dates: start: 20040101, end: 20060101
  3. CLINDAMYCIN HCL [Concomitant]
     Route: 042
     Dates: start: 20051001, end: 20060601

REACTIONS (2)
  - ABORTION SPONTANEOUS [None]
  - POSTPARTUM HAEMORRHAGE [None]
